FAERS Safety Report 7555040-0 (Version None)
Quarter: 2011Q2

REPORT INFORMATION
  Report Type: 
  Country: None (occurrence: None)
  Receive Date: 20110617
  Receipt Date: 20110614
  Transmission Date: 20111010
  Serious: Yes (Other)
  Sender: FDA-Public Use
  Company Number: US-PFIZER INC-2011059229

PATIENT
  Sex: Male

DRUGS (6)
  1. PRILOSEC [Concomitant]
     Indication: GASTROOESOPHAGEAL REFLUX DISEASE
     Dosage: UNK
     Dates: start: 20060101
  2. SEROQUEL [Concomitant]
     Indication: DEPRESSION
  3. TRILEPTAL [Concomitant]
     Indication: BIPOLAR DISORDER
     Dosage: UNK
     Dates: start: 20060101
  4. ACETAMINOPHEN AND HYDROCODONE BITARTRATE [Concomitant]
     Indication: ANALGESIC THERAPY
     Dosage: UNK
     Dates: start: 20060101
  5. SEROQUEL [Concomitant]
     Indication: BIPOLAR DISORDER
     Dosage: UNK
     Dates: start: 20060101
  6. CHANTIX [Suspect]
     Indication: SMOKING CESSATION THERAPY
     Dosage: STARTER MONTHLY PACK ON EACH OCCASION AND SEVERAL CONTINUING MONTHLY PACKS THEREAFTER
     Dates: start: 20080501, end: 20080529

REACTIONS (7)
  - POST-TRAUMATIC STRESS DISORDER [None]
  - DEPRESSION [None]
  - SUICIDE ATTEMPT [None]
  - PANIC ATTACK [None]
  - ANXIETY [None]
  - INTENTIONAL OVERDOSE [None]
  - BIPOLAR DISORDER [None]
